FAERS Safety Report 12190143 (Version 1)
Quarter: 2016Q1

REPORT INFORMATION
  Report Type: Spontaneous
  Country: CA (occurrence: CA)
  Receive Date: 20160318
  Receipt Date: 20160318
  Transmission Date: 20160526
  Serious: Yes (Death, Other)
  Sender: FDA-Public Use
  Company Number: CA-ROCHE-1725682

PATIENT
  Age: 29 Year
  Sex: Female

DRUGS (3)
  1. METHYLPREDNISOLONE. [Concomitant]
     Active Substance: METHYLPREDNISOLONE
     Route: 042
  2. IMMUNOGLOBULIN [Concomitant]
     Active Substance: HUMAN IMMUNOGLOBULIN G
     Route: 042
  3. RITUXIMAB [Suspect]
     Active Substance: RITUXIMAB
     Indication: ENCEPHALITIS AUTOIMMUNE
     Route: 065

REACTIONS (9)
  - Pre-eclampsia [Unknown]
  - Premature delivery [Unknown]
  - Hypertension [Recovered/Resolved]
  - Subacute sclerosing panencephalitis [Unknown]
  - Coma [Unknown]
  - Death [Fatal]
  - Pneumonia aspiration [Unknown]
  - Maternal exposure during pregnancy [Unknown]
  - Renal tubular necrosis [Unknown]
